FAERS Safety Report 7820529-3 (Version None)
Quarter: 2011Q4

REPORT INFORMATION
  Report Type: 
  Country: None (occurrence: None)
  Receive Date: 20111018
  Receipt Date: 20111010
  Transmission Date: 20120403
  Serious: Yes (Other)
  Sender: FDA-Public Use
  Company Number: PHHY2011SE89592

PATIENT
  Sex: Male

DRUGS (3)
  1. RITALIN [Suspect]
     Dosage: 10 MG, PRN
  2. RITALIN [Suspect]
     Dosage: 20 MG, PRN
  3. CONCERTA [Concomitant]
     Dosage: 36 MG, UNK

REACTIONS (2)
  - DEPRESSION [None]
  - DECREASED APPETITE [None]
